FAERS Safety Report 23513096 (Version 2)
Quarter: 2024Q3

REPORT INFORMATION
  Report Type: Spontaneous
  Country: US (occurrence: US)
  Receive Date: 20240212
  Receipt Date: 20240923
  Transmission Date: 20241016
  Serious: No
  Sender: PFIZER
  Company Number: US-PFIZER INC-202400037547

PATIENT
  Age: 53 Year
  Sex: Female

DRUGS (2)
  1. OXBRYTA [Suspect]
     Active Substance: VOXELOTOR
     Dosage: 1500 MG, 1X/DAY (500 MG, 3 TABLETS ONCE DAILY)
     Route: 048
     Dates: start: 2022
  2. OXBRYTA [Suspect]
     Active Substance: VOXELOTOR
     Dosage: 1500 MG, 1X/DAY (500 MG, 3 TABLETS ONCE DAILY)
     Route: 048
     Dates: start: 2022

REACTIONS (2)
  - COVID-19 [Not Recovered/Not Resolved]
  - Malaise [Unknown]
